FAERS Safety Report 7808635-0 (Version None)
Quarter: 2011Q4

REPORT INFORMATION
  Report Type: 
  Country: None (occurrence: None)
  Receive Date: 20111012
  Receipt Date: 20111003
  Transmission Date: 20120403
  Serious: Yes (Hospitalization)
  Sender: FDA-Public Use
  Company Number: US-US-EMD SERONO, INC.-7063869

PATIENT
  Sex: Female
  Weight: 91 kg

DRUGS (6)
  1. GABAPENTIN [Concomitant]
     Indication: PAIN
  2. CARBAMAZEPINE [Concomitant]
     Indication: PAIN
  3. PROVIGIL [Concomitant]
     Indication: FATIGUE
  4. GALANTAMINE HYDROBROMIDE [Concomitant]
  5. REBIF [Suspect]
     Indication: MULTIPLE SCLEROSIS
     Route: 058
     Dates: start: 20110523, end: 20110523
  6. REBIF [Suspect]
     Route: 058
     Dates: start: 20110605

REACTIONS (3)
  - HALLUCINATION [None]
  - HEPATIC CIRRHOSIS [None]
  - GASTROINTESTINAL HAEMORRHAGE [None]
